FAERS Safety Report 6706849-4 (Version None)
Quarter: 2010Q2

REPORT INFORMATION
  Report Type: 
  Country: None (occurrence: None)
  Receive Date: 20100503
  Receipt Date: 20100426
  Transmission Date: 20101027
  Serious: Yes (Hospitalization)
  Sender: FDA-Public Use
  Company Number: GR-ABBOTT-10P-066-0621396-00

PATIENT
  Age: 82 Year
  Sex: Female

DRUGS (10)
  1. DEPAKENE [Suspect]
     Indication: EPILEPSY
     Dates: start: 20081210, end: 20081219
  2. DEPAKENE [Suspect]
     Dates: start: 20081219, end: 20090115
  3. DEPAKENE [Suspect]
     Dates: start: 20090115, end: 20090907
  4. DEPAKENE [Suspect]
     Dates: start: 20090907, end: 20090914
  5. DEPAKENE [Suspect]
     Dates: start: 20090915
  6. MEMANTINE HCL [Suspect]
     Indication: MEMORY IMPAIRMENT
     Route: 048
     Dates: start: 20090901, end: 20090903
  7. NEURONTIN [Suspect]
     Indication: DRUG USE FOR UNKNOWN INDICATION
     Dosage: DAILY
     Dates: start: 20090905, end: 20090914
  8. PLAVIX [Concomitant]
     Indication: DRUG USE FOR UNKNOWN INDICATION
     Dates: start: 20040101
  9. PHENYTOIN SODIUM CAP [Concomitant]
     Indication: DRUG USE FOR UNKNOWN INDICATION
     Dates: start: 20090910, end: 20090913
  10. PHENYTOIN SODIUM CAP [Concomitant]
     Dates: start: 20081210

REACTIONS (10)
  - ALTERED STATE OF CONSCIOUSNESS [None]
  - APPETITE DISORDER [None]
  - ASTHENIA [None]
  - BALANCE DISORDER [None]
  - GAIT DISTURBANCE [None]
  - MEMORY IMPAIRMENT [None]
  - MOOD ALTERED [None]
  - PARAESTHESIA [None]
  - SOMNOLENCE [None]
  - URINE ABNORMALITY [None]
